FAERS Safety Report 9681260 (Version 1)
Quarter: 2013Q4

REPORT INFORMATION
  Report Type: Spontaneous
  Country: DE (occurrence: DE)
  Receive Date: 20131111
  Receipt Date: 20131111
  Transmission Date: 20140711
  Serious: Yes (Other)
  Sender: FDA-Public Use
  Company Number: GXKR2013DE003512

PATIENT
  Age: 69 Year
  Sex: Female
  Weight: 61 kg

DRUGS (4)
  1. MCP HEXAL [Suspect]
     Indication: ABDOMINAL PAIN UPPER
     Dosage: 10 MG, ONCE/SINGLE
     Route: 042
     Dates: start: 20131103, end: 20131103
  2. PANTOZOL [Concomitant]
     Indication: ABDOMINAL PAIN UPPER
     Dosage: UNK
     Route: 042
     Dates: start: 20131103, end: 20131103
  3. MARCUMAR [Concomitant]
     Indication: AORTIC VALVE REPLACEMENT
     Dosage: UKN, LONG TERM MEDICATION
  4. ENALAPRIL [Concomitant]
     Indication: HYPERTENSION
     Dosage: UKN, LONG TERM MEDICATION

REACTIONS (5)
  - Urinary retention [Recovering/Resolving]
  - Fall [Recovering/Resolving]
  - Injury [Recovering/Resolving]
  - Constipation [Recovering/Resolving]
  - Dizziness [Recovering/Resolving]
